FAERS Safety Report 24328683 (Version 2)
Quarter: 2024Q4

REPORT INFORMATION
  Report Type: Spontaneous
  Country: US (occurrence: US)
  Receive Date: 20240917
  Receipt Date: 20241014
  Transmission Date: 20250114
  Serious: No
  Sender: CALLIDITAS THERAPEUTICS AB
  Company Number: US-Calliditas-2024CAL01244

PATIENT
  Age: 60 Year
  Sex: Female

DRUGS (2)
  1. TARPEYO [Suspect]
     Active Substance: BUDESONIDE
     Indication: IgA nephropathy
     Route: 048
     Dates: start: 20240606, end: 20240905
  2. CITALOPRAM [Concomitant]
     Active Substance: CITALOPRAM

REACTIONS (16)
  - Dyspnoea [Unknown]
  - Affect lability [Unknown]
  - Contusion [Unknown]
  - Petechiae [Unknown]
  - Haemorrhage [Unknown]
  - Animal bite [Unknown]
  - Urinary incontinence [Unknown]
  - Somnolence [Unknown]
  - Peripheral swelling [Unknown]
  - Decreased appetite [Unknown]
  - Urine abnormality [Unknown]
  - Rash pruritic [Unknown]
  - Inappropriate schedule of product administration [Unknown]
  - Haemoglobin decreased [Recovered/Resolved]
  - Fatigue [Unknown]
  - Product use issue [Unknown]

NARRATIVE: CASE EVENT DATE: 20240601
